FAERS Safety Report 4956272-8 (Version None)
Quarter: 2006Q1

REPORT INFORMATION
  Report Type: 
  Country: None (occurrence: None)
  Receive Date: 20060323
  Receipt Date: 20060306
  Transmission Date: 20060701
  Serious: Yes (Other)
  Sender: FDA-Public Use
  Company Number: CA200602000456

PATIENT
  Age: 62 Year
  Sex: Male

DRUGS (14)
  1. FORTEO [Suspect]
     Indication: OSTEOPOROSIS
     Dosage: 20 UG, DAILY (1/D),
     Dates: start: 20050526, end: 20060130
  2. FORTEO [Concomitant]
  3. TESTOSTERONE (TESTOSTERONE UNKNOWN MANUFACTURER) [Concomitant]
  4. TAMSULOSIN HYDROCHLORIDE (TAMSULOSIN HYDROCHLORIDE) [Concomitant]
  5. DETROL (TOLTERIDONE L-TARTRATE) [Concomitant]
  6. CITRACAL (CALCIUM CITRATE) [Concomitant]
  7. MULTIVIT (VITAMINS NOS) [Concomitant]
  8. ADVAIR DISKUS 100/50 [Concomitant]
  9. ALTACE [Concomitant]
  10. MIACALCIN [Concomitant]
  11. VIOXX /USA/(ROFECOXIB) [Concomitant]
  12. CELEBREX /UNK/(CELECOXIB) [Concomitant]
  13. TYLENOL W/CODENINE NO.3 (CODEINE PHOSPHATE, PARACETAMOL) [Concomitant]
  14. SPIRIVA [Concomitant]

REACTIONS (4)
  - DIARRHOEA [None]
  - NAUSEA [None]
  - PROSTATE CANCER [None]
  - VOMITING [None]
